FAERS Safety Report 5093847-2 (Version None)
Quarter: 2006Q3

REPORT INFORMATION
  Report Type: 
  Country: None (occurrence: None)
  Receive Date: 20060831
  Receipt Date: 20060821
  Transmission Date: 20061208
  Serious: Yes (Hospitalization)
  Sender: FDA-Public Use
  Company Number: GB-NOVOPROD-256224

PATIENT

DRUGS (1)
  1. LEVEMIR [Suspect]

REACTIONS (3)
  - ADVERSE EVENT [None]
  - FALL [None]
  - POOR QUALITY DRUG ADMINISTERED [None]
